FAERS Safety Report 7950261-7 (Version None)
Quarter: 2011Q4

REPORT INFORMATION
  Report Type: 
  Country: None (occurrence: None)
  Receive Date: 20111130
  Receipt Date: 20111117
  Transmission Date: 20120403
  Serious: Yes (Hospitalization)
  Sender: FDA-Public Use
  Company Number: US-BAYER-2011-036382

PATIENT
  Age: 28 Year
  Sex: Female
  Weight: 54 kg

DRUGS (5)
  1. LEVOTHYROXINE SODIUM [Concomitant]
     Dosage: UNK
     Route: 048
     Dates: start: 20071001
  2. MULTI-VITAMIN [Concomitant]
     Dosage: UNK UNK, QD
     Route: 048
  3. ASTELIN [Concomitant]
     Dosage: UNK
     Route: 045
     Dates: start: 20071101, end: 20081101
  4. YAZ [Suspect]
     Indication: ACNE
     Dosage: UNK, QD
     Route: 048
     Dates: start: 20060801, end: 20080801
  5. YAZ [Suspect]
     Indication: CONTRACEPTION

REACTIONS (4)
  - PULMONARY EMBOLISM [None]
  - INJURY [None]
  - PAIN [None]
  - THROMBOSIS [None]
